FAERS Safety Report 10506649 (Version 1)
Quarter: 2014Q4

REPORT INFORMATION
  Report Type: Spontaneous
  Country: DE (occurrence: None)
  Receive Date: 20141007
  Receipt Date: 20141007
  Transmission Date: 20150528
  Serious: Yes (Other)
  Sender: FDA-Public Use
  Company Number: INT_00471_2014

PATIENT
  Age: 44 Year
  Sex: Male

DRUGS (3)
  1. CHEMOTHERAPEUTICS [Suspect]
     Active Substance: UNSPECIFIED INGREDIENT
     Indication: TESTICULAR GERM CELL CANCER
     Dosage: 2 CYCLES PRIOR TO THE EVENT
  2. ETOPOSIDE (ETOPOSIDE) [Suspect]
     Active Substance: ETOPOSIDE
     Indication: TESTICULAR GERM CELL CANCER
     Dosage: 2 CYCLES PRIOR TO THE EVENT
  3. CISPLATIN (CISPLATIN) (HQ SPECIALTY) [Suspect]
     Active Substance: CISPLATIN
     Indication: TESTICULAR GERM CELL CANCER
     Dosage: 2 CYCLES PRIOR TO THE EVENT

REACTIONS (2)
  - Peripheral artery thrombosis [None]
  - Pulmonary embolism [None]
